FAERS Safety Report 7626997-4 (Version None)
Quarter: 2011Q3

REPORT INFORMATION
  Report Type: 
  Country: None (occurrence: None)
  Receive Date: 20110721
  Receipt Date: 20110715
  Transmission Date: 20111222
  Serious: Yes (Life-Threatening)
  Sender: FDA-Public Use
  Company Number: CA-MERCK-1107USA02155

PATIENT
  Age: 82 Year
  Sex: Male
  Weight: 86 kg

DRUGS (5)
  1. MAVIK [Concomitant]
     Route: 048
  2. AMLODIPINE [Concomitant]
     Route: 048
  3. JANUMET [Suspect]
     Route: 048
  4. BISOPROLOL [Concomitant]
     Route: 048
  5. ASPIRIN [Concomitant]
     Route: 048

REACTIONS (9)
  - PANCREATITIS [None]
  - ACUTE RESPIRATORY DISTRESS SYNDROME [None]
  - RENAL FAILURE ACUTE [None]
  - OXYGEN SATURATION DECREASED [None]
  - ABDOMINAL PAIN UPPER [None]
  - ANURIA [None]
  - BLOOD AMYLASE INCREASED [None]
  - NAUSEA [None]
  - VOMITING [None]
